FAERS Safety Report 8052390-9 (Version None)
Quarter: 2011Q4

REPORT INFORMATION
  Report Type: 
  Country: None (occurrence: None)
  Receive Date: 20111228
  Receipt Date: 20111216
  Transmission Date: 20120403
  Serious: Yes (Other)
  Sender: FDA-Public Use
  Company Number: 2011030611

PATIENT
  Age: 40 Year
  Sex: Female
  Weight: 113.8529 kg

DRUGS (37)
  1. OBETROL [Concomitant]
  2. LIPITOR [Concomitant]
  3. VALTREX (VALACICLOVIR HYDRCHLORIDE) [Concomitant]
  4. ALBUTEROL [Concomitant]
  5. ESTRADIOL [Concomitant]
  6. MELOXICAM [Concomitant]
  7. PERCOCET [Concomitant]
  8. ABILIFY [Concomitant]
  9. DOCUSATE POTASIUM (DOCUSATE POTASSIUM) [Concomitant]
  10. SPIRIVA [Concomitant]
  11. PRO-AIR HFA (PROCATEROL HYDROCHLORIDE) [Concomitant]
  12. HYDROCODONE BITARTRATE + ACETAMINOPHEN [Concomitant]
  13. HIZENTRA [Suspect]
  14. LEVOTHYROXINE SODIUM [Concomitant]
  15. OPTIVAR [Concomitant]
  16. TOPAMAX [Concomitant]
  17. BUSPAR (BUSPIRONE HYROCHLORIDE) [Concomitant]
  18. SYMBICORT (BUSESONIDE W/FORMOTEROL FUMARATE) [Concomitant]
  19. MIRALAX [Concomitant]
  20. HIZENTRA [Suspect]
  21. PREVACID [Concomitant]
  22. REQUIP [Concomitant]
  23. RANITIDINE (RANITDINE) [Concomitant]
  24. XENICAL [Concomitant]
  25. TYLENOL WITH CODEINE (PANADEINE CO) [Concomitant]
  26. SINGULAIR [Concomitant]
  27. HIZENTRA [Suspect]
     Indication: HYPOGLOBULINAEMIA
     Dosage: 23 G 1X/WEEK, 115 ML VIA 6 SITES OVER 1 HOUR  52 MINUTES SUBCUTANEOUS
     Route: 058
     Dates: start: 20111210
  28. HIZENTRA [Suspect]
     Indication: IMMUNODEFICIENCY
     Dosage: 23 G 1X/WEEK, 115 ML VIA 6 SITES OVER 1 HOUR  52 MINUTES SUBCUTANEOUS
     Route: 058
     Dates: start: 20111210
  29. HIZENTRA [Suspect]
     Indication: HYPOGLOBULINAEMIA
     Dosage: 23 G 1X/WEEK, 115 ML VIA 6 SITES OVER 1 HOUR  52 MINUTES SUBCUTANEOUS
     Route: 058
     Dates: start: 20110313
  30. HIZENTRA [Suspect]
     Indication: IMMUNODEFICIENCY
     Dosage: 23 G 1X/WEEK, 115 ML VIA 6 SITES OVER 1 HOUR  52 MINUTES SUBCUTANEOUS
     Route: 058
     Dates: start: 20110313
  31. HIZENTRA [Suspect]
     Indication: HYPOGLOBULINAEMIA
     Dosage: 23 G 1X/WEEK, 115 ML VIA 6 SITES OVER 1 HOUR  52 MINUTES SUBCUTANEOUS
     Route: 058
     Dates: start: 20111219
  32. HIZENTRA [Suspect]
     Indication: IMMUNODEFICIENCY
     Dosage: 23 G 1X/WEEK, 115 ML VIA 6 SITES OVER 1 HOUR  52 MINUTES SUBCUTANEOUS
     Route: 058
     Dates: start: 20111219
  33. HIZENTRA [Suspect]
     Indication: HYPOGLOBULINAEMIA
     Dosage: 23 G 1X/WEEK, 115 ML VIA 6 SITES OVER 1 HOUR  52 MINUTES SUBCUTANEOUS
     Route: 058
     Dates: start: 20111210
  34. HIZENTRA [Suspect]
     Indication: IMMUNODEFICIENCY
     Dosage: 23 G 1X/WEEK, 115 ML VIA 6 SITES OVER 1 HOUR  52 MINUTES SUBCUTANEOUS
     Route: 058
     Dates: start: 20111210
  35. CLONAZEPAM [Concomitant]
  36. WELLBUTRIN XL [Concomitant]
  37. CLARITIN [Concomitant]

REACTIONS (2)
  - ORAL CANDIDIASIS [None]
  - SINUSITIS [None]
